FAERS Safety Report 18026087 (Version 2)
Quarter: 2020Q3

REPORT INFORMATION
  Report Type: Spontaneous
  Country: US (occurrence: US)
  Receive Date: 20200715
  Receipt Date: 20200727
  Transmission Date: 20201103
  Serious: Yes (Other)
  Sender: FDA-Public Use
  Company Number: US-APOTEX-2020AP013803

PATIENT
  Sex: Female

DRUGS (4)
  1. CELECOXIB. [Suspect]
     Active Substance: CELECOXIB
     Indication: PAIN MANAGEMENT
     Dosage: 200 MILLIGRAM, Q.12H
     Route: 065
  2. ASPIRIN [ACETYLSALICYLIC ACID] [Interacting]
     Active Substance: ASPIRIN
     Indication: THROMBOSIS PROPHYLAXIS
     Dosage: 81 MILLIGRAM, Q.12H
     Route: 065
  3. PANTOPRAZOLE [Concomitant]
     Active Substance: PANTOPRAZOLE
     Indication: GASTROINTESTINAL DISORDER PROPHYLAXIS
     Dosage: 40 MILLIGRAM, QD
     Route: 065
  4. ACETAMINOPHEN. [Concomitant]
     Active Substance: ACETAMINOPHEN
     Indication: PAIN MANAGEMENT
     Dosage: 1000 MILLIGRAM, TID
     Route: 065

REACTIONS (4)
  - Post procedural pulmonary embolism [Unknown]
  - Drug interaction [Unknown]
  - Inappropriate schedule of product administration [Unknown]
  - Embolism venous [Unknown]
